FAERS Safety Report 9177497 (Version 1)
Quarter: 2013Q1

REPORT INFORMATION
  Report Type: Spontaneous
  Country: GB (occurrence: None)
  Receive Date: 20130319
  Receipt Date: 20130319
  Transmission Date: 20140127
  Serious: Yes (Other)
  Sender: FDA-Public Use
  Company Number: AUR-APL-2013-02128

PATIENT
  Age: 38 Year
  Sex: Male

DRUGS (9)
  1. RIBAVIRIN (RIBAVIRIN) [Suspect]
     Indication: HEPATITIS C
     Route: 048
     Dates: start: 20120530
  2. PEGINTERFERON ALFA-2B (PEGINTERFERON ALFA-2B) [Suspect]
     Indication: HEPATITIS C
     Route: 058
     Dates: start: 20120530
  3. INCIVO (TELAPREVIR) [Suspect]
     Indication: HEPATITIS C
     Dosage: (750 MG, 3 IN 1 D), ORAL
     Route: 048
     Dates: start: 20120530
  4. DIAZEPAM (DIAZEPAM) [Concomitant]
  5. DOTHIEPIN HYDROCHLORIDE (DOSULEPIN) [Concomitant]
  6. METHADONE HYDROCHLORIDE (METHADONE HYDROCHLORIDE) [Concomitant]
  7. PROPRANOLOL HYDOCHLORIDE (PROPRANOLOL HYDROCHLORIDE) [Concomitant]
  8. VITAMINS NOS (VITAMINS NOS) [Concomitant]
  9. ZOPICLONE (ZOPICLONE) [Concomitant]

REACTIONS (9)
  - Anaemia [None]
  - Confusional state [None]
  - Dyspnoea [None]
  - Urinary incontinence [None]
  - Fatigue [None]
  - Nausea [None]
  - Diarrhoea [None]
  - Rash [None]
  - Depressed mood [None]
